FAERS Safety Report 9287443 (Version 4)
Quarter: 2013Q3

REPORT INFORMATION
  Report Type: Spontaneous
  Country: US (occurrence: US)
  Receive Date: 20130514
  Receipt Date: 20130711
  Transmission Date: 20140515
  Serious: No
  Sender: FDA-Public Use
  Company Number: US-BIOGENIDEC-2013BI040894

PATIENT
  Sex: Female

DRUGS (4)
  1. AVONEX [Suspect]
     Indication: MULTIPLE SCLEROSIS
     Route: 030
     Dates: start: 19960610
  2. AVONEX [Suspect]
     Indication: MULTIPLE SCLEROSIS
     Route: 030
     Dates: start: 19970715
  3. AVONEX [Suspect]
     Indication: MULTIPLE SCLEROSIS
     Route: 030
     Dates: end: 19980610
  4. AVONEX [Suspect]
     Indication: MULTIPLE SCLEROSIS
     Route: 030
     Dates: end: 19980715

REACTIONS (26)
  - Toothache [Unknown]
  - Back pain [Unknown]
  - Neuralgia [Unknown]
  - Peripheral coldness [Unknown]
  - Temperature intolerance [Unknown]
  - General symptom [Unknown]
  - Multiple sclerosis [Unknown]
  - Nervousness [Recovered/Resolved]
  - Balance disorder [Not Recovered/Not Resolved]
  - Tension [Unknown]
  - Sinusitis [Unknown]
  - Adverse drug reaction [Unknown]
  - Headache [Not Recovered/Not Resolved]
  - Feeling abnormal [Unknown]
  - Anxiety [Recovered/Resolved]
  - Dizziness [Not Recovered/Not Resolved]
  - Neck pain [Unknown]
  - Nausea [Not Recovered/Not Resolved]
  - Pain [Unknown]
  - Malaise [Unknown]
  - Confusional state [Unknown]
  - Emotional distress [Unknown]
  - Influenza like illness [Recovered/Resolved]
  - Musculoskeletal stiffness [Unknown]
  - Injection site pain [Recovered/Resolved]
  - Paraesthesia [Unknown]
